FAERS Safety Report 4428712-4 (Version None)
Quarter: 2004Q3

REPORT INFORMATION
  Report Type: 
  Country: None (occurrence: None)
  Receive Date: 20040818
  Receipt Date: 20040116
  Transmission Date: 20050211
  Serious: No
  Sender: FDA-Public Use
  Company Number: US-BRISTOL-MYERS SQUIBB COMPANY-12479770

PATIENT
  Age: 65 Year
  Sex: Female
  Weight: 77 kg

DRUGS (1)
  1. TEQUIN [Suspect]
     Indication: RESPIRATORY DISORDER
     Route: 048
     Dates: start: 20030101, end: 20030101

REACTIONS (1)
  - HYPOAESTHESIA [None]
